FAERS Safety Report 17808794 (Version 1)
Quarter: 2020Q2

REPORT INFORMATION
  Report Type: Report from Study
  Country: US (occurrence: US)
  Receive Date: 20200520
  Receipt Date: 20200520
  Transmission Date: 20200714
  Serious: No
  Sender: FDA-Public Use
  Company Number: NVSC2020US138249

PATIENT
  Sex: Female

DRUGS (1)
  1. ENTRESTO [Suspect]
     Active Substance: SACUBITRIL\VALSARTAN
     Indication: CARDIAC FAILURE
     Dosage: 24.26 MG, OTHER (1/2 TABLET IN AM, 1 TABLET AT NIGHT)
     Route: 048
     Dates: start: 202003

REACTIONS (4)
  - Asthenia [Unknown]
  - Wrong technique in product usage process [Unknown]
  - Dizziness [Recovered/Resolved]
  - Hypotension [Unknown]
